FAERS Safety Report 19075614 (Version 1)
Quarter: 2021Q1

REPORT INFORMATION
  Report Type: Spontaneous
  Country: CA (occurrence: CA)
  Receive Date: 20210330
  Receipt Date: 20210330
  Transmission Date: 20210420
  Serious: Yes (Other)
  Sender: FDA-Public Use
  Company Number: CA-TEVA-2021-CA-1894897

PATIENT
  Sex: Male

DRUGS (1)
  1. PREDNISONE. [Suspect]
     Active Substance: PREDNISONE
     Route: 065

REACTIONS (5)
  - Crohn^s disease [Unknown]
  - Diarrhoea [Unknown]
  - Abdominal pain [Unknown]
  - Treatment failure [Unknown]
  - Malaise [Unknown]
